FAERS Safety Report 24258637 (Version 1)
Quarter: 2024Q3

REPORT INFORMATION
  Report Type: Spontaneous
  Country: CA (occurrence: CA)
  Receive Date: 20240828
  Receipt Date: 20240828
  Transmission Date: 20241016
  Serious: Yes (Other)
  Sender: PFIZER
  Company Number: CA-PFIZER INC-202400051453

PATIENT
  Age: 35 Year
  Sex: Male

DRUGS (4)
  1. RUXIENCE [Suspect]
     Active Substance: RITUXIMAB-PVVR
     Indication: Granulomatosis with polyangiitis
     Dosage: 500 MG, (SINGLE DOSE) EVERY 6 MONTHS
     Route: 042
     Dates: start: 20210408, end: 20210408
  2. RUXIENCE [Suspect]
     Active Substance: RITUXIMAB-PVVR
     Dosage: 500 MG, (SINGLE DOSE) EVERY 6 MONTHS
     Route: 042
     Dates: start: 20220126, end: 20220126
  3. RUXIENCE [Suspect]
     Active Substance: RITUXIMAB-PVVR
     Dosage: 500 MG, (SINGLE DOSE) EVERY 6 MONTHS
     Route: 042
     Dates: start: 20220805, end: 20220805
  4. RUXIENCE [Suspect]
     Active Substance: RITUXIMAB-PVVR
     Dosage: 500 MG, (SINGLE DOSE) EVERY 6 MONTHS
     Route: 042
     Dates: start: 20230823

REACTIONS (4)
  - Tooth infection [Recovering/Resolving]
  - Disease recurrence [Recovering/Resolving]
  - Tooth extraction [Unknown]
  - Tooth fracture [Unknown]

NARRATIVE: CASE EVENT DATE: 20240216
